FAERS Safety Report 11199680 (Version 1)
Quarter: 2015Q2

REPORT INFORMATION
  Report Type: Spontaneous
  Country: US (occurrence: US)
  Receive Date: 20150618
  Receipt Date: 20150618
  Transmission Date: 20150821
  Serious: Yes (Other)
  Sender: FDA-Public Use
  Company Number: US-INCYTE CORPORATION-2015IN002724

PATIENT
  Sex: Male

DRUGS (11)
  1. RESTASIS [Concomitant]
     Active Substance: CYCLOSPORINE
  2. DIOVAN [Concomitant]
     Active Substance: VALSARTAN
  3. VITAMIN D                          /00107901/ [Concomitant]
     Active Substance: ERGOCALCIFEROL
  4. CLOBETASOL [Concomitant]
     Active Substance: CLOBETASOL
  5. CALCIUM [Concomitant]
     Active Substance: CALCIUM
  6. SINGULAIR [Concomitant]
     Active Substance: MONTELUKAST SODIUM
  7. JAKAFI [Suspect]
     Active Substance: RUXOLITINIB
     Indication: POLYCYTHAEMIA VERA
     Dosage: 5 MG, BID
     Dates: start: 20140307
  8. HYDROMORPHONE [Concomitant]
     Active Substance: HYDROMORPHONE
  9. ASPIRIN. [Concomitant]
     Active Substance: ASPIRIN
  10. PROBIOTICS NOS [Concomitant]
     Active Substance: PROBIOTICS NOS
  11. XOPENEX [Concomitant]
     Active Substance: LEVALBUTEROL HYDROCHLORIDE

REACTIONS (1)
  - Leukaemia [Unknown]
